FAERS Safety Report 9895734 (Version 2)
Quarter: 2014Q1

REPORT INFORMATION
  Report Type: Spontaneous
  Country: US (occurrence: US)
  Receive Date: 20140213
  Receipt Date: 20140213
  Transmission Date: 20141002
  Serious: No
  Sender: FDA-Public Use
  Company Number: US-BRISTOL-MYERS SQUIBB COMPANY-18979120

PATIENT
  Age: 66 Year
  Sex: Male
  Weight: 158.73 kg

DRUGS (2)
  1. ORENCIA FOR INJ 250 MG/VIAL [Suspect]
     Indication: RHEUMATOID ARTHRITIS
     Dosage: BEGAN THE ORENCIA IV HE RECEIVED HALF DOSES FOR ^1 OR 2 MONTHS,^ ?INJ,POWDER,LYOPHILIZED FOR SOLN
     Route: 042
  2. METHOTREXATE [Concomitant]

REACTIONS (2)
  - Myalgia [Unknown]
  - Drug ineffective [Unknown]
